FAERS Safety Report 18200816 (Version 2)
Quarter: 2020Q4

REPORT INFORMATION
  Report Type: Report from Study
  Country: MX (occurrence: MX)
  Receive Date: 20200826
  Receipt Date: 20201009
  Transmission Date: 20210113
  Serious: Yes (Death)
  Sender: FDA-Public Use
  Company Number: MX-SEATTLE GENETICS-2020SGN03782

PATIENT
  Sex: Female

DRUGS (1)
  1. BRENTUXIMAB VEDOTIN [Suspect]
     Active Substance: BRENTUXIMAB VEDOTIN
     Indication: HODGKIN^S DISEASE
     Dosage: 117 MILLIGRAM
     Route: 042
     Dates: start: 20200605

REACTIONS (1)
  - Diarrhoea [Fatal]
